FAERS Safety Report 7047205-1 (Version None)
Quarter: 2010Q4

REPORT INFORMATION
  Report Type: 
  Country: None (occurrence: None)
  Receive Date: 20101015
  Receipt Date: 20101004
  Transmission Date: 20110411
  Serious: Yes (Hospitalization)
  Sender: FDA-Public Use
  Company Number: JP-WATSON-2010-12421

PATIENT
  Age: 70 Year
  Sex: Female

DRUGS (1)
  1. MINOCYCLINE HCL [Suspect]
     Indication: INFECTION
     Dosage: 100 MG, DAILY
     Route: 048

REACTIONS (5)
  - GAIT DISTURBANCE [None]
  - NEUROPATHY PERIPHERAL [None]
  - PARAESTHESIA [None]
  - PYREXIA [None]
  - VASCULITIS [None]
